FAERS Safety Report 7670201-8 (Version None)
Quarter: 2011Q3

REPORT INFORMATION
  Report Type: 
  Country: None (occurrence: None)
  Receive Date: 20110808
  Receipt Date: 20110728
  Transmission Date: 20111222
  Serious: Yes (Hospitalization)
  Sender: FDA-Public Use
  Company Number: ES-GENENTECH-322262

PATIENT
  Sex: Male
  Weight: 86 kg

DRUGS (1)
  1. RITUXIMAB [Suspect]
     Indication: SYSTEMIC LUPUS ERYTHEMATOSUS
     Dosage: 1000 UNK, UNK
     Route: 042

REACTIONS (1)
  - EPIGLOTTITIS HAEMOPHILUS [None]
